FAERS Safety Report 24943973 (Version 1)
Quarter: 2025Q1

REPORT INFORMATION
  Report Type: Spontaneous
  Country: US (occurrence: US)
  Receive Date: 20250207
  Receipt Date: 20250207
  Transmission Date: 20250409
  Serious: Yes (Other)
  Sender: PFIZER
  Company Number: US-PFIZER INC-PV202300208729

PATIENT
  Age: 75 Year
  Sex: Female
  Weight: 63.4 kg

DRUGS (5)
  1. IBRANCE [Suspect]
     Active Substance: PALBOCICLIB
     Route: 048
     Dates: start: 201703
  2. IBRANCE [Suspect]
     Active Substance: PALBOCICLIB
     Route: 048
     Dates: start: 201802
  3. IBRANCE [Suspect]
     Active Substance: PALBOCICLIB
     Route: 048
     Dates: start: 201907
  4. LETROZOLE [Concomitant]
     Active Substance: LETROZOLE
     Dates: start: 201703
  5. FEMARA [Concomitant]
     Active Substance: LETROZOLE

REACTIONS (11)
  - Neutropenia [Unknown]
  - Dyspnoea [Unknown]
  - Chest pain [Unknown]
  - Dyspepsia [Unknown]
  - Skin disorder [Unknown]
  - Fatigue [Unknown]
  - Glomerular filtration rate decreased [Unknown]
  - White blood cell count decreased [Unknown]
  - Red cell distribution width increased [Unknown]
  - Blood glucose decreased [Unknown]
  - Product prescribing error [Unknown]

NARRATIVE: CASE EVENT DATE: 20250102
